FAERS Safety Report 21479063 (Version 1)
Quarter: 2022Q4

REPORT INFORMATION
  Report Type: Report from Study
  Country: EG (occurrence: EG)
  Receive Date: 20221019
  Receipt Date: 20221019
  Transmission Date: 20230113
  Serious: Yes (Other)
  Sender: FDA-Public Use
  Company Number: EG-NOVARTISPH-NVSC2022EG222494

PATIENT
  Age: 27 Year
  Sex: Female

DRUGS (4)
  1. GILENYA [Suspect]
     Active Substance: FINGOLIMOD HYDROCHLORIDE
     Indication: Multiple sclerosis
     Dosage: 1 DOSAGE FORM
     Route: 048
     Dates: start: 2021, end: 202209
  2. COBAL F [Concomitant]
     Indication: Product used for unknown indication
     Dosage: 2 DOSAGE FORM, QD
     Route: 048
     Dates: end: 202201
  3. FOLIC ACID [Concomitant]
     Active Substance: FOLIC ACID
     Indication: Alopecia
     Dosage: 1 DOSAGE FORM, (IN THE MORNING)
     Route: 048
  4. BENFOTIAMINE\CYANOCOBALAMIN\PYRIDOXINE HYDROCHLORIDE [Concomitant]
     Active Substance: BENFOTIAMINE\CYANOCOBALAMIN\PYRIDOXINE HYDROCHLORIDE
     Indication: Asthenia
     Dosage: 1 DOSAGE FORM, QD
     Route: 048
     Dates: start: 202208

REACTIONS (7)
  - Anxiety [Recovering/Resolving]
  - Arthritis [Not Recovered/Not Resolved]
  - Insomnia [Recovering/Resolving]
  - Concomitant disease aggravated [Not Recovered/Not Resolved]
  - Hepatic enzyme increased [Unknown]
  - Multiple sclerosis [Unknown]
  - Costochondritis [Unknown]

NARRATIVE: CASE EVENT DATE: 20220101
